FAERS Safety Report 12899004 (Version 1)
Quarter: 2016Q4

REPORT INFORMATION
  Report Type: Spontaneous
  Country: NL (occurrence: NL)
  Receive Date: 20161101
  Receipt Date: 20161101
  Transmission Date: 20170207
  Serious: Yes (Life-Threatening, Hospitalization)
  Sender: FDA-Public Use
  Company Number: NL-BAXTER-2016BAX054411

PATIENT
  Age: 68 Year
  Sex: Female
  Weight: 59 kg

DRUGS (9)
  1. SELENIUM [Concomitant]
     Active Substance: SELENIUM
     Indication: PRODUCT USED FOR UNKNOWN INDICATION
     Dosage: VARIOUS DOSAGE
     Route: 048
     Dates: start: 201212
  2. NON SPECIFIED VITAMIN [Concomitant]
     Indication: PRODUCT USED FOR UNKNOWN INDICATION
     Dosage: VARIOUS DOSAGE
     Route: 048
     Dates: start: 201212
  3. EPIRUBICINE [Suspect]
     Active Substance: EPIRUBICIN
     Indication: BREAST CANCER
     Dosage: 3 COURSES WITH 3 WEEKS BETWEEN THEM; INFUSION; FEC THERAPY
     Route: 042
     Dates: start: 20130403
  4. CHLORELLA [Concomitant]
     Indication: PRODUCT USED FOR UNKNOWN INDICATION
     Dosage: VARIOUS DOSAGE
     Route: 048
     Dates: start: 201212
  5. FLUOROURACIL. [Suspect]
     Active Substance: FLUOROURACIL
     Indication: BREAST CANCER
     Dosage: 3 COURSES WITH 3 WEEKS BETWEEN THEM; INFUSION; FEC THERAPY
     Route: 042
     Dates: start: 20130403
  6. ENDOXAN I.V., POEDER VOOR OPLOSSING VOOR INJECTIE 200, 500, 1000 MG [Suspect]
     Active Substance: CYCLOPHOSPHAMIDE
     Indication: BREAST CANCER
     Dosage: 3 COURSES WITH 3 WEEKS BETWEEN THEM; INTRAVENOUS INFUSION; FEC THERAPY
     Route: 042
     Dates: start: 20130403
  7. Q10 [Concomitant]
     Indication: PRODUCT USED FOR UNKNOWN INDICATION
     Dosage: VARIOUS DOSAGE
     Route: 048
     Dates: start: 201212
  8. MAGNESIUM CHLORIDE. [Concomitant]
     Active Substance: MAGNESIUM CHLORIDE
     Indication: PRODUCT USED FOR UNKNOWN INDICATION
     Dosage: VARIOUS DOSAGE
     Route: 048
     Dates: start: 201212
  9. TAXOTERE [Suspect]
     Active Substance: DOCETAXEL
     Indication: BREAST CANCER
     Dosage: CONC V INFVLST 40MG/ML FL0,5ML+SOLV 1,5ML; 2 COURSES
     Route: 042
     Dates: start: 201304

REACTIONS (2)
  - Cardiac failure [Not Recovered/Not Resolved]
  - Sense of oppression [Unknown]

NARRATIVE: CASE EVENT DATE: 2013
